FAERS Safety Report 11012616 (Version 1)
Quarter: 2015Q2

REPORT INFORMATION
  Report Type: Spontaneous
  Country: US (occurrence: None)
  Receive Date: 20150410
  Receipt Date: 20150410
  Transmission Date: 20150821
  Serious: Yes (Other)
  Sender: FDA-Public Use
  Company Number: None

PATIENT
  Age: 36 Year
  Sex: Female
  Weight: 68.04 kg

DRUGS (5)
  1. VITAMIN C [Concomitant]
     Active Substance: ASCORBIC ACID
  2. METFORMIN [Concomitant]
     Active Substance: METFORMIN HYDROCHLORIDE
  3. NEXPLANON [Suspect]
     Active Substance: ETONOGESTREL
     Dates: start: 20140908
  4. GLIMEPIRIDE. [Concomitant]
     Active Substance: GLIMEPIRIDE
  5. MULTIVITAMIN [Concomitant]
     Active Substance: VITAMINS

REACTIONS (4)
  - Arthralgia [None]
  - Pain in extremity [None]
  - Diabetes mellitus inadequate control [None]
  - Arthritis [None]

NARRATIVE: CASE EVENT DATE: 20150324
